FAERS Safety Report 5238663-3 (Version None)
Quarter: 2007Q1

REPORT INFORMATION
  Report Type: 
  Country: None (occurrence: None)
  Receive Date: 20070214
  Receipt Date: 20070214
  Transmission Date: 20070707
  Serious: Yes (Hospitalization)
  Sender: FDA-Public Use
  Company Number: None

PATIENT
  Age: 70 Year
  Sex: Male
  Weight: 58.514 kg

DRUGS (2)
  1. CLOPIDOGREL [Suspect]
     Indication: CEREBROVASCULAR ACCIDENT
     Dosage: 75MG DAILY ONE DOSE SINCE PROSTATE BIOPSY PREVIOUS OK.
  2. CLOPIDOGREL [Suspect]
     Indication: CORONARY ARTERY DISEASE
     Dosage: 75MG DAILY ONE DOSE SINCE PROSTATE BIOPSY PREVIOUS OK.

REACTIONS (1)
  - GASTROINTESTINAL HAEMORRHAGE [None]
